FAERS Safety Report 16500583 (Version 1)
Quarter: 2019Q3

REPORT INFORMATION
  Report Type: Spontaneous
  Country: US (occurrence: US)
  Receive Date: 20190701
  Receipt Date: 20190701
  Transmission Date: 20191004
  Serious: No
  Sender: FDA-Public Use
  Company Number: US-GLENMARK PHARMACEUTICALS-2019GMK041480

PATIENT

DRUGS (2)
  1. LIDOCAINE OINTMENT USP 5% [Suspect]
     Active Substance: LIDOCAINE
     Indication: ARTHRITIS
  2. LIDOCAINE OINTMENT USP 5% [Suspect]
     Active Substance: LIDOCAINE
     Indication: OSTEOARTHRITIS
     Dosage: UNK
     Route: 065

REACTIONS (3)
  - Product use in unapproved indication [Unknown]
  - Product packaging difficult to open [Unknown]
  - Product closure removal difficult [Unknown]
